FAERS Safety Report 23994023 (Version 1)
Quarter: 2024Q2

REPORT INFORMATION
  Report Type: Report from Study
  Country: US (occurrence: XA)
  Receive Date: 20240620
  Receipt Date: 20240620
  Transmission Date: 20240716
  Serious: Yes (Death, Hospitalization)
  Sender: FDA-Public Use
  Company Number: XA-SERB S.A.S.-2158344

PATIENT

DRUGS (2)
  1. CYANOKIT [Suspect]
     Active Substance: HYDROXOCOBALAMIN
     Indication: Toxicity to various agents
  2. CYANOKIT [Suspect]
     Active Substance: HYDROXOCOBALAMIN
     Indication: Neoplasm malignant

REACTIONS (3)
  - Hypersensitivity [Unknown]
  - Rhinitis [Recovered/Resolved]
  - Pneumonia [Not Recovered/Not Resolved]
